FAERS Safety Report 4548347-2 (Version None)
Quarter: 2005Q1

REPORT INFORMATION
  Report Type: 
  Country: None (occurrence: None)
  Receive Date: 20050106
  Receipt Date: 20050106
  Transmission Date: 20050727
  Serious: Yes (Death, Hospitalization)
  Sender: FDA-Public Use
  Company Number: None

PATIENT
  Age: 74 Year
  Sex: Female
  Weight: 84.9 kg

DRUGS (16)
  1. MORPHINE [Suspect]
     Indication: BACK PAIN
     Dosage: 3 MG IVP Q3H PRN THEN INCREASED TO 5MG IVP Q3H PRN
     Route: 042
     Dates: start: 20041231, end: 20050101
  2. SINGULAIR [Concomitant]
  3. LIPITOR [Concomitant]
  4. CALCIUM GLUCONATE [Concomitant]
  5. IMDUR [Concomitant]
  6. ASPIRIN [Concomitant]
  7. AEROBID [Concomitant]
  8. CARDIZEM [Concomitant]
  9. NITROGLYCERINE SL [Concomitant]
  10. SEREVENT [Concomitant]
  11. PROTONIX [Concomitant]
  12. SPIRIVA [Concomitant]
  13. POTASSIUM [Concomitant]
  14. COUMADIN [Concomitant]
  15. ACCUPRIL [Concomitant]
  16. DEMADEX [Concomitant]

REACTIONS (1)
  - HYPOTENSION [None]
